FAERS Safety Report 14154628 (Version 2)
Quarter: 2017Q4

REPORT INFORMATION
  Report Type: Report from Study
  Country: None (occurrence: SE)
  Receive Date: 20171102
  Receipt Date: 20171205
  Transmission Date: 20180321
  Serious: Yes (Hospitalization)
  Sender: FDA-Public Use
  Company Number: SE-ABBVIE-17P-150-2143161-00

PATIENT
  Age: 48 Year
  Sex: Male
  Weight: 78.7 kg

DRUGS (12)
  1. VENETOCLAX. [Suspect]
     Active Substance: VENETOCLAX
     Indication: CHRONIC LYMPHOCYTIC LEUKAEMIA
     Route: 048
     Dates: start: 20171024, end: 20171024
  2. LACTATE RINGERS [Concomitant]
     Route: 042
     Dates: start: 20171031, end: 20171101
  3. ALLOPURINOL. [Concomitant]
     Active Substance: ALLOPURINOL
     Indication: PROPHYLAXIS
     Route: 048
     Dates: start: 20171022
  4. RASBURICASE [Concomitant]
     Active Substance: RASBURICASE
     Indication: PROPHYLAXIS
     Route: 042
     Dates: start: 20171024, end: 20171024
  5. LACTATE RINGERS [Concomitant]
     Route: 042
     Dates: start: 20171026, end: 20171026
  6. RASBURICASE [Concomitant]
     Active Substance: RASBURICASE
     Route: 042
     Dates: start: 20171026, end: 20171026
  7. LACTATE RINGERS [Concomitant]
     Route: 042
     Dates: start: 20171024, end: 20171024
  8. ZEFFIX [Concomitant]
     Active Substance: LAMIVUDINE
     Indication: ANTIVIRAL PROPHYLAXIS
     Route: 048
     Dates: start: 20131218
  9. RENVELA [Concomitant]
     Active Substance: SEVELAMER CARBONATE
     Indication: BLOOD PHOSPHORUS INCREASED
     Route: 048
     Dates: start: 20171024, end: 20171024
  10. VENETOCLAX. [Suspect]
     Active Substance: VENETOCLAX
     Route: 048
     Dates: start: 20171026
  11. RASBURICASE [Concomitant]
     Active Substance: RASBURICASE
     Route: 042
     Dates: start: 20171101, end: 20171101
  12. LACTATE RINGERS [Concomitant]
     Indication: PROPHYLAXIS
     Route: 042
     Dates: start: 20171023, end: 20171023

REACTIONS (1)
  - Aspartate aminotransferase increased [Recovered/Resolved]

NARRATIVE: CASE EVENT DATE: 20171024
